FAERS Safety Report 5247734-7 (Version None)
Quarter: 2007Q1

REPORT INFORMATION
  Report Type: 
  Country: None (occurrence: None)
  Receive Date: 20070220
  Receipt Date: 20070205
  Transmission Date: 20070707
  Serious: No
  Sender: FDA-Public Use
  Company Number: T200700146

PATIENT
  Age: 16 Year
  Sex: Female

DRUGS (3)
  1. OXYCODONE/ACETAMINOPHEN(OXYCODONE HCL, ACETAMINOPHEN) TABLET, 5/325MG [Suspect]
     Indication: PAIN
     Dosage: 2 TABLETS EVERY 4 HOURS, ORAL
     Route: 048
     Dates: start: 20070126, end: 20070126
  2. MORPHINE SULFATE [Concomitant]
  3. OXYCODONE HYDROCHLORIDE W/PARACETAMOL (OXYCODONE HYDROCHLORIDE, PARACE [Concomitant]

REACTIONS (7)
  - APNOEA [None]
  - CYANOSIS [None]
  - FATIGUE [None]
  - INCORRECT DOSE ADMINISTERED [None]
  - SOMNOLENCE [None]
  - UNRESPONSIVE TO STIMULI [None]
  - VOMITING [None]
